FAERS Safety Report 7635577-6 (Version None)
Quarter: 2011Q3

REPORT INFORMATION
  Report Type: 
  Country: None (occurrence: None)
  Receive Date: 20110726
  Receipt Date: 20110712
  Transmission Date: 20111222
  Serious: Yes (Hospitalization)
  Sender: FDA-Public Use
  Company Number: PHHY2011NL62714

PATIENT
  Sex: Female
  Weight: 57 kg

DRUGS (4)
  1. DIOVAN [Suspect]
     Indication: HYPERTENSION
     Dosage: 80 MG, UNK
     Dates: start: 20110426, end: 20110503
  2. RITOFORINE [Concomitant]
     Dosage: 250 MG, UNK
  3. CYRESS [Concomitant]
     Dosage: 10 MG, UNK
  4. ASCAL CARDIO [Concomitant]

REACTIONS (6)
  - JOINT INJURY [None]
  - OEDEMA PERIPHERAL [None]
  - HEADACHE [None]
  - FALL [None]
  - MUSCLE SPASMS [None]
  - ARRHYTHMIA [None]
